FAERS Safety Report 19393234 (Version 1)
Quarter: 2021Q2

REPORT INFORMATION
  Report Type: Other
  Country: BD (occurrence: BD)
  Receive Date: 20210609
  Receipt Date: 20210609
  Transmission Date: 20210717
  Serious: Yes (Other)
  Sender: FDA-Public Use
  Company Number: BD-ROCHE-2844606

PATIENT
  Sex: Female

DRUGS (4)
  1. PACLITAXEL. [Suspect]
     Active Substance: PACLITAXEL
     Indication: PRODUCT USED FOR UNKNOWN INDICATION
     Route: 065
  2. PREGABA [Concomitant]
     Active Substance: PREGABALIN
  3. HERCEPTIN [Suspect]
     Active Substance: TRASTUZUMAB
     Indication: HER2 POSITIVE BREAST CANCER
     Route: 058
  4. PEGFILGRASTIM [Suspect]
     Active Substance: PEGFILGRASTIM
     Indication: PRODUCT USED FOR UNKNOWN INDICATION
     Route: 065

REACTIONS (1)
  - Cardiac disorder [Unknown]

NARRATIVE: CASE EVENT DATE: 20210209
